FAERS Safety Report 4710169-7 (Version None)
Quarter: 2005Q3

REPORT INFORMATION
  Report Type: 
  Country: None (occurrence: None)
  Receive Date: 20050708
  Receipt Date: 20050708
  Transmission Date: 20060218
  Serious: Yes (Hospitalization, Other)
  Sender: FDA-Public Use
  Company Number: None

PATIENT
  Age: 83 Year
  Sex: Male
  Weight: 71.6683 kg

DRUGS (1)
  1. ZETIA [Suspect]
     Dosage: 1 A DAY
     Dates: start: 20050401, end: 20050601

REACTIONS (1)
  - PLATELET COUNT DECREASED [None]
